FAERS Safety Report 16033714 (Version 3)
Quarter: 2019Q2

REPORT INFORMATION
  Report Type: Spontaneous
  Country: PH (occurrence: PH)
  Receive Date: 20190305
  Receipt Date: 20190509
  Transmission Date: 20190711
  Serious: Yes (Death, Other)
  Sender: FDA-Public Use
  Company Number: PH-ASTRAZENECA-2019SE23171

PATIENT
  Age: 70 Year
  Sex: Female

DRUGS (7)
  1. TAGRISSO [Suspect]
     Active Substance: OSIMERTINIB
     Indication: LUNG NEOPLASM MALIGNANT
     Dosage: 80.0MG UNKNOWN
     Route: 048
     Dates: start: 20190118, end: 20190208
  2. TRIMETHOPRIM. [Concomitant]
     Active Substance: TRIMETHOPRIM
  3. PIPERALLIN TAZOBACTUM [Concomitant]
  4. VANCOMYCIN [Concomitant]
     Active Substance: VANCOMYCIN
     Indication: DEVICE RELATED INFECTION
  5. DEXAMETHAZONE [Concomitant]
     Active Substance: DEXAMETHASONE
  6. MEROPENEM. [Concomitant]
     Active Substance: MEROPENEM
     Indication: PNEUMONIA
  7. MICAFUNGIN. [Concomitant]
     Active Substance: MICAFUNGIN SODIUM
     Indication: FUNGAL INFECTION

REACTIONS (2)
  - Pneumonitis [Fatal]
  - Metastases to central nervous system [Unknown]

NARRATIVE: CASE EVENT DATE: 20190208
